FAERS Safety Report 7767738-X (Version None)
Quarter: 2011Q3

REPORT INFORMATION
  Report Type: 
  Country: None (occurrence: None)
  Receive Date: 20110922
  Receipt Date: 20110418
  Transmission Date: 20111222
  Serious: No
  Sender: FDA-Public Use
  Company Number: US-ASTRAZENECA-2007UW06505

PATIENT
  Sex: Male
  Weight: 114.3 kg

DRUGS (8)
  1. SEROQUEL [Suspect]
     Indication: DEPRESSION
     Route: 048
     Dates: start: 19950401, end: 20050901
  2. SIMVUASTATIN [Concomitant]
     Indication: BLOOD CHOLESTEROL INCREASED
  3. CITALOPRAM HYDROBROMIDE [Concomitant]
     Dates: start: 20020101
  4. SEROQUEL [Suspect]
     Indication: SLEEP DISORDER
     Route: 048
     Dates: start: 19950401, end: 20050901
  5. LISINOPRIL [Concomitant]
     Indication: HYPERPROLACTINAEMIA
  6. ZYPREXA [Concomitant]
     Dates: start: 20030101, end: 20040101
  7. SEROQUEL [Suspect]
     Indication: SCHIZOPHRENIA
     Route: 048
     Dates: start: 19950401, end: 20050901
  8. SIMVUASTATIN [Concomitant]
     Indication: HYPERLIPIDAEMIA

REACTIONS (4)
  - TYPE 2 DIABETES MELLITUS [None]
  - OBESITY [None]
  - JOINT INJURY [None]
  - HYPERPROLACTINAEMIA [None]
